FAERS Safety Report 10178207 (Version 1)
Quarter: 2014Q2

REPORT INFORMATION
  Report Type: Spontaneous
  Country: IT (occurrence: IT)
  Receive Date: 20140519
  Receipt Date: 20140519
  Transmission Date: 20141212
  Serious: Yes (Other)
  Sender: FDA-Public Use
  Company Number: IT-PAR PHARMACEUTICAL, INC-2014SCPR009064

PATIENT
  Sex: 0

DRUGS (3)
  1. DANTRIUM [Suspect]
     Indication: MUSCLE SPASTICITY
     Dosage: 3 MG/KG, / DAY
     Route: 065
  2. BACLOFEN [Concomitant]
     Indication: MUSCLE SPASTICITY
     Dosage: 2 MG/KG, / DAY
     Route: 065
  3. BACLOFEN [Concomitant]
     Dosage: 570 MCG, / DAY
     Route: 037

REACTIONS (4)
  - Muscle spasticity [Recovering/Resolving]
  - Pneumonia aspiration [Unknown]
  - Dysphagia [Recovering/Resolving]
  - Vomiting [Unknown]
